FAERS Safety Report 7273012-0 (Version None)
Quarter: 2011Q1

REPORT INFORMATION
  Report Type: 
  Country: None (occurrence: None)
  Receive Date: 20110203
  Receipt Date: 20110124
  Transmission Date: 20110831
  Serious: Yes (Hospitalization, Other)
  Sender: FDA-Public Use
  Company Number: B0693997A

PATIENT
  Age: 41 Year
  Sex: Male
  Weight: 53 kg

DRUGS (6)
  1. EFAVIRENZ [Suspect]
     Indication: ACQUIRED IMMUNODEFICIENCY SYNDROME
     Dosage: 600MG PER DAY
     Route: 048
     Dates: start: 20060411
  2. RIFABUTIN [Concomitant]
     Indication: TUBERCULOSIS
     Dates: start: 20060404
  3. UNKNOWN ANTI-TUBERCULOSIS DRUGS [Concomitant]
  4. LAMIVUDINE [Suspect]
     Indication: ACQUIRED IMMUNODEFICIENCY SYNDROME
     Dosage: 300MG TWICE PER DAY
     Route: 048
     Dates: start: 20060411
  5. STAVUDINE [Suspect]
     Indication: ACQUIRED IMMUNODEFICIENCY SYNDROME
     Dosage: 80MG PER DAY
     Route: 048
     Dates: start: 20060411
  6. PYRAZINAMIDE [Concomitant]
     Dates: start: 20060801

REACTIONS (21)
  - CRANIAL NERVE DISORDER [None]
  - CRYPTOCOCCOSIS [None]
  - GRAND MAL CONVULSION [None]
  - LYMPH NODE PAIN [None]
  - PROGRESSIVE MULTIFOCAL LEUKOENCEPHALOPATHY [None]
  - NECROSIS [None]
  - BRAIN OEDEMA [None]
  - CEREBRAL TOXOPLASMOSIS [None]
  - IMMUNE RECONSTITUTION SYNDROME [None]
  - TUBERCULOSIS [None]
  - LYMPHADENOPATHY [None]
  - LOCAL SWELLING [None]
  - GRANULOMA [None]
  - DISSEMINATED TUBERCULOSIS [None]
  - LYMPHOMA [None]
  - LUNG DISORDER [None]
  - PYREXIA [None]
  - C-REACTIVE PROTEIN INCREASED [None]
  - CHEST X-RAY ABNORMAL [None]
  - CONVULSION [None]
  - PURULENT DISCHARGE [None]
